FAERS Safety Report 9775653 (Version 2)
Quarter: 2014Q1

REPORT INFORMATION
  Report Type: Spontaneous
  Country: IT (occurrence: IT)
  Receive Date: 20131220
  Receipt Date: 20140204
  Transmission Date: 20141002
  Serious: Yes (Other)
  Sender: FDA-Public Use
  Company Number: IT-TEVA-450861ISR

PATIENT
  Age: 61 Year
  Sex: Female
  Weight: 43 kg

DRUGS (5)
  1. EPIRUBICINA TEVA 2 MG/ML SOLUCION INYECTABLE Y PARA PERFUSION EFG [Suspect]
     Indication: BREAST CANCER
     Dosage: 96 MILLIGRAM DAILY;
     Route: 040
     Dates: start: 20131121, end: 20131121
  2. FLUOROURACILE TEVA [Suspect]
     Indication: BREAST CANCER
     Dosage: 535 MILLIGRAM DAILY;
     Route: 040
     Dates: start: 20131121, end: 20131121
  3. ENDOXAN BAXTER [Suspect]
     Indication: BREAST CANCER
     Dosage: 535 MILLIGRAM DAILY; POWDER FOR SOLUTION FOR INFUSION
     Route: 040
     Dates: start: 20131121, end: 20131121
  4. DECADRON [Concomitant]
     Indication: PROPHYLAXIS OF NAUSEA AND VOMITING
     Dosage: 20 MILLIGRAM DAILY;
     Route: 042
     Dates: start: 20131121, end: 20131121
  5. ZOFRAN [Concomitant]
     Indication: PROPHYLAXIS OF NAUSEA AND VOMITING
     Dosage: 8 MILLIGRAM DAILY;
     Route: 042
     Dates: start: 20131121, end: 20131121

REACTIONS (1)
  - Pancytopenia [Recovered/Resolved]
